FAERS Safety Report 16741685 (Version 1)
Quarter: 2019Q4

REPORT INFORMATION
  Report Type: Spontaneous
  Country: US (occurrence: US)
  Receive Date: 20190826
  Receipt Date: 20190826
  Transmission Date: 20200122
  Serious: No
  Sender: FDA-Public Use
  Company Number: None

PATIENT
  Age: 12 Year
  Sex: Female

DRUGS (3)
  1. CLARITIN 5MG [Concomitant]
  2. HYDROXYUREA 500MG [Concomitant]
     Active Substance: HYDROXYUREA
  3. ENDARI [Suspect]
     Active Substance: GLUTAMINE
     Route: 048
     Dates: start: 20190802

REACTIONS (1)
  - Product preparation error [None]
